FAERS Safety Report 6824713-7 (Version None)
Quarter: 2010Q3

REPORT INFORMATION
  Report Type: 
  Country: None (occurrence: None)
  Receive Date: 20100708
  Receipt Date: 20061116
  Transmission Date: 20110219
  Serious: No
  Sender: FDA-Public Use
  Company Number: US-PFIZER INC-2006143231

PATIENT
  Sex: Female
  Weight: 86.18 kg

DRUGS (3)
  1. CHANTIX [Suspect]
     Indication: SMOKING CESSATION THERAPY
     Dates: start: 20061106, end: 20061115
  2. SYNTHROID [Concomitant]
     Indication: THYROID DISORDER
  3. PREVACID [Concomitant]
     Indication: GASTRITIS

REACTIONS (1)
  - NAUSEA [None]
